FAERS Safety Report 20939515 (Version 1)
Quarter: 2022Q2

REPORT INFORMATION
  Report Type: Spontaneous
  Country: US (occurrence: None)
  Receive Date: 20220609
  Receipt Date: 20220609
  Transmission Date: 20220721
  Serious: Yes (Other)
  Sender: FDA-Public Use
  Company Number: None

PATIENT
  Age: 53 Year
  Sex: Female
  Weight: 63 kg

DRUGS (3)
  1. TREMFYA [Suspect]
     Active Substance: GUSELKUMAB
     Indication: Psoriasis
     Dosage: OTHER QUANTITY : 1 INJECTION(S);?OTHER FREQUENCY : LOADING DOSE;?
     Route: 058
     Dates: start: 20220404, end: 20220404
  2. ALBUTEROL [Concomitant]
     Active Substance: ALBUTEROL
  3. advair 500 [Concomitant]

REACTIONS (2)
  - Dyspnoea [None]
  - Cough [None]

NARRATIVE: CASE EVENT DATE: 20220405
